FAERS Safety Report 6897540-2 (Version None)
Quarter: 2010Q3

REPORT INFORMATION
  Report Type: 
  Country: None (occurrence: None)
  Receive Date: 20100802
  Receipt Date: 20070611
  Transmission Date: 20110219
  Serious: No
  Sender: FDA-Public Use
  Company Number: US-PFIZER INC-2007049040

PATIENT
  Sex: Female
  Weight: 63.636 kg

DRUGS (8)
  1. LYRICA [Suspect]
     Indication: DIABETIC NEUROPATHY
     Dates: start: 20070606
  2. TOPROL-XL [Concomitant]
  3. QUINAPRIL [Concomitant]
  4. METFORMIN HCL [Concomitant]
  5. GLYBURIDE [Concomitant]
  6. FOSAMAX [Concomitant]
  7. ZETIA [Concomitant]
  8. ACTOS [Concomitant]

REACTIONS (1)
  - DIZZINESS [None]
